FAERS Safety Report 13004229 (Version 2)
Quarter: 2016Q4

REPORT INFORMATION
  Report Type: Spontaneous
  Country: JP (occurrence: JP)
  Receive Date: 20161206
  Receipt Date: 20161213
  Transmission Date: 20170207
  Serious: Yes (Other)
  Sender: FDA-Public Use
  Company Number: JP-ASTRAZENECA-2016SF27913

PATIENT
  Sex: Male

DRUGS (1)
  1. BICALUTAMIDE. [Suspect]
     Active Substance: BICALUTAMIDE
     Dosage: 80 MG EVERY DAY, NON-ASTRAZENECA GENERIC BICALUTAMIDE
     Route: 048

REACTIONS (2)
  - Tremor [Unknown]
  - Malignant neoplasm progression [Unknown]
